FAERS Safety Report 7623396-6 (Version None)
Quarter: 2011Q3

REPORT INFORMATION
  Report Type: 
  Country: None (occurrence: None)
  Receive Date: 20110720
  Receipt Date: 20110713
  Transmission Date: 20111222
  Serious: Yes (Hospitalization)
  Sender: FDA-Public Use
  Company Number: AU-ROCHE-790185

PATIENT
  Sex: Male

DRUGS (9)
  1. OXYCODONE HCL [Concomitant]
  2. NAPROSYN [Suspect]
     Indication: ARTHRITIS
     Dosage: FREQUENCY: DAILY
     Route: 065
  3. MINIRIN NASAL [Suspect]
     Dosage: FREQUENCY: DAILY
     Route: 065
     Dates: start: 20110526, end: 20110604
  4. PLAVIX [Concomitant]
  5. DOLOXENE [Concomitant]
  6. FOLIC ACID [Concomitant]
  7. MOTILIUM [Concomitant]
  8. NORVASC [Concomitant]
  9. LIPITOR [Concomitant]

REACTIONS (5)
  - ASTHENIA [None]
  - HYPONATRAEMIA [None]
  - CONFUSIONAL STATE [None]
  - NAUSEA [None]
  - LETHARGY [None]
